FAERS Safety Report 13415632 (Version 2)
Quarter: 2017Q2

REPORT INFORMATION
  Report Type: Spontaneous
  Country: US (occurrence: US)
  Receive Date: 20170407
  Receipt Date: 20170411
  Transmission Date: 20170830
  Serious: No
  Sender: FDA-Public Use
  Company Number: US-BAYER-2017-065554

PATIENT
  Age: 55 Year
  Sex: Female

DRUGS (1)
  1. CLIMARA [Suspect]
     Active Substance: ESTRADIOL
     Indication: HORMONE REPLACEMENT THERAPY
     Dosage: 0.1MG/DAY
     Route: 062
     Dates: start: 20170323

REACTIONS (2)
  - Product adhesion issue [None]
  - Frustration tolerance decreased [None]

NARRATIVE: CASE EVENT DATE: 2017
